FAERS Safety Report 4470092-2 (Version None)
Quarter: 2004Q3

REPORT INFORMATION
  Report Type: 
  Country: None (occurrence: None)
  Receive Date: 20040910
  Receipt Date: 20040706
  Transmission Date: 20050211
  Serious: No
  Sender: FDA-Public Use
  Company Number: 2004222355US

PATIENT
  Sex: Male
  Weight: 68 kg

DRUGS (2)
  1. BEXTRA [Suspect]
     Indication: AURICULAR SWELLING
     Dosage: 20 MG, QD
     Dates: start: 20040601
  2. ALLEGRA [Concomitant]

REACTIONS (1)
  - HAEMORRHAGE SUBCUTANEOUS [None]
